FAERS Safety Report 21758153 (Version 1)
Quarter: 2022Q4

REPORT INFORMATION
  Report Type: Spontaneous
  Country: US (occurrence: US)
  Receive Date: 20221221
  Receipt Date: 20221221
  Transmission Date: 20230113
  Serious: No
  Sender: FDA-Public Use
  Company Number: US-JNJFOC-20221233731

PATIENT
  Sex: Male

DRUGS (2)
  1. EDURANT [Interacting]
     Active Substance: RILPIVIRINE HYDROCHLORIDE
     Indication: Product used for unknown indication
     Route: 048
  2. SOLIFENACIN [Interacting]
     Active Substance: SOLIFENACIN
     Indication: Product used for unknown indication
     Route: 065

REACTIONS (3)
  - Dyspepsia [Recovered/Resolved]
  - Bladder disorder [Recovered/Resolved]
  - Drug interaction [Unknown]
